FAERS Safety Report 18372039 (Version 1)
Quarter: 2020Q4

REPORT INFORMATION
  Report Type: Spontaneous
  Country: US (occurrence: US)
  Receive Date: 20201012
  Receipt Date: 20201012
  Transmission Date: 20210114
  Serious: No
  Sender: FDA-Public Use
  Company Number: US-PFIZER INC-2020391497

PATIENT
  Age: 68 Year
  Sex: Female
  Weight: 70.7 kg

DRUGS (2)
  1. CAMPTOSAR [Suspect]
     Active Substance: IRINOTECAN HYDROCHLORIDE
     Indication: RECTAL CANCER
     Dosage: 320MG/500CC NORMAL SALINE
     Route: 042
     Dates: start: 20201008
  2. NORMAL SALINE [Concomitant]
     Active Substance: SODIUM CHLORIDE

REACTIONS (4)
  - Dysarthria [Recovering/Resolving]
  - Hypoglycaemia [Unknown]
  - Anxiety [Recovering/Resolving]
  - Wrong technique in product usage process [Unknown]

NARRATIVE: CASE EVENT DATE: 202010
